FAERS Safety Report 8491996-X (Version None)
Quarter: 2012Q3

REPORT INFORMATION
  Report Type: 
  Country: None (occurrence: None)
  Receive Date: 20120706
  Receipt Date: 20120627
  Transmission Date: 20120928
  Serious: Yes (Hospitalization)
  Sender: FDA-Public Use
  Company Number: US-MYLANLABS-2012S1012004

PATIENT
  Age: 79 Year
  Sex: Female
  Weight: 63.5 kg

DRUGS (4)
  1. CARVEDILOL [Concomitant]
     Route: 048
  2. GABAPENTIN [Concomitant]
     Route: 048
  3. FENTANYL-100 [Suspect]
     Indication: BACK PAIN
     Dosage: CHANGED Q72H
     Route: 062
     Dates: start: 20120501, end: 20120606
  4. ACETAMINOPHEN AND OXYCODONE HCL [Suspect]
     Indication: BACK PAIN
     Route: 048
     Dates: start: 20120501

REACTIONS (4)
  - DRUG INEFFECTIVE [None]
  - BACK PAIN [None]
  - CONFUSIONAL STATE [None]
  - DISORIENTATION [None]
